FAERS Safety Report 11341298 (Version 2)
Quarter: 2016Q2

REPORT INFORMATION
  Report Type: Spontaneous
  Country: US (occurrence: US)
  Receive Date: 20150805
  Receipt Date: 20160507
  Transmission Date: 20160815
  Serious: Yes (Hospitalization)
  Sender: FDA-Public Use
  Company Number: US-JNJFOC-20150719359

PATIENT
  Age: 79 Year
  Sex: Female

DRUGS (6)
  1. XARELTO [Suspect]
     Active Substance: RIVAROXABAN
     Indication: THROMBOSIS
     Dosage: VARYING DOSES OF 15 AND 20 MG
     Route: 048
     Dates: start: 20130314, end: 20130408
  2. IBUPROFEN. [Suspect]
     Active Substance: IBUPROFEN
     Indication: PRODUCT USED FOR UNKNOWN INDICATION
     Route: 065
     Dates: end: 20130408
  3. XARELTO [Suspect]
     Active Substance: RIVAROXABAN
     Indication: DEEP VEIN THROMBOSIS
     Dosage: VARYING DOSES OF 15 AND 20 MG
     Route: 048
     Dates: start: 20130314, end: 20130408
  4. XARELTO [Suspect]
     Active Substance: RIVAROXABAN
     Indication: DEEP VEIN THROMBOSIS
     Dosage: VARYING DOSES OF 15 AND 20 MG
     Route: 048
     Dates: start: 2013, end: 20130506
  5. IBUPROFEN. [Suspect]
     Active Substance: IBUPROFEN
     Route: 065
  6. XARELTO [Suspect]
     Active Substance: RIVAROXABAN
     Indication: THROMBOSIS
     Dosage: VARYING DOSES OF 15 AND 20 MG
     Route: 048
     Dates: start: 2013, end: 20130506

REACTIONS (1)
  - Upper gastrointestinal haemorrhage [Recovering/Resolving]

NARRATIVE: CASE EVENT DATE: 20130408
